FAERS Safety Report 18810737 (Version 5)
Quarter: 2021Q4

REPORT INFORMATION
  Report Type: Report from Study
  Country: KR (occurrence: KR)
  Receive Date: 20210129
  Receipt Date: 20211102
  Transmission Date: 20220303
  Serious: Yes (Hospitalization, Other)
  Sender: FDA-Public Use
  Company Number: KR-AMGEN-KORNI2021013823

PATIENT
  Age: 76 Year
  Sex: Female
  Weight: 52 kg

DRUGS (9)
  1. CARFILZOMIB [Suspect]
     Active Substance: CARFILZOMIB
     Indication: Plasma cell myeloma
     Dosage: 80 MILLIGRAM
     Route: 042
     Dates: start: 20200925
  2. CARFILZOMIB [Suspect]
     Active Substance: CARFILZOMIB
     Dosage: UNK
     Route: 042
  3. DEXAMETHASONE [Concomitant]
     Active Substance: DEXAMETHASONE
     Indication: Plasma cell myeloma
     Dosage: 2.5- 40 MILLIGRAM
     Dates: start: 20201007
  4. ACYCLOVIR [Concomitant]
     Active Substance: ACYCLOVIR
     Dosage: 200 MILLIGRAM
     Dates: start: 20200925
  5. CODAEWON FORTE [Concomitant]
     Dosage: 20 MILLILITER
     Dates: start: 20201005, end: 20201007
  6. LYRICA [Concomitant]
     Active Substance: PREGABALIN
     Dosage: 150 MILLIGRAM
     Dates: start: 20181017
  7. DICAMAX [Concomitant]
     Dosage: 1 UNK
     Dates: start: 20200208
  8. ULTRACET ER SEMI [Concomitant]
     Dosage: 1 UNK
     Dates: start: 20200129
  9. ENDIS [Concomitant]
     Dosage: 300 MILLIGRAM
     Dates: start: 20201005, end: 20201007

REACTIONS (3)
  - Device related infection [Recovered/Resolved]
  - Neutropenia [Recovered/Resolved]
  - Mass [Recovered/Resolved]

NARRATIVE: CASE EVENT DATE: 20201008
